FAERS Safety Report 10640801 (Version 1)
Quarter: 2014Q4

REPORT INFORMATION
  Report Type: Spontaneous
  Country: US (occurrence: None)
  Receive Date: 20141205
  Receipt Date: 20141205
  Transmission Date: 20150529
  Serious: Yes (Hospitalization)
  Sender: FDA-Public Use
  Company Number: 2014-US-015639

PATIENT
  Age: 47 Year
  Sex: Female

DRUGS (4)
  1. XYREM [Suspect]
     Active Substance: SODIUM OXYBATE
     Indication: CATAPLEXY
     Route: 048
     Dates: start: 200307, end: 2014
  2. XYREM [Suspect]
     Active Substance: SODIUM OXYBATE
     Indication: NARCOLEPSY
     Route: 048
     Dates: start: 200307, end: 2014
  3. MACROBID [Suspect]
     Active Substance: NITROFURANTOIN\NITROFURANTOIN MONOHYDRATE
     Indication: PRODUCT USED FOR UNKNOWN INDICATION
     Dates: start: 2014
  4. GLEEVEC (IMATINIB MESILATE) [Concomitant]

REACTIONS (6)
  - Blood potassium decreased [None]
  - Urine odour abnormal [None]
  - Kidney infection [None]
  - Staphylococcal infection [None]
  - Adverse drug reaction [None]
  - Muscle spasms [None]

NARRATIVE: CASE EVENT DATE: 201401
